FAERS Safety Report 9576220 (Version 1)
Quarter: 2013Q4

REPORT INFORMATION
  Report Type: Spontaneous
  Country: US (occurrence: US)
  Receive Date: 20131001
  Receipt Date: 20131001
  Transmission Date: 20140711
  Serious: No
  Sender: FDA-Public Use
  Company Number: US-AMGEN-USASP2013001544

PATIENT
  Age: 49 Year
  Sex: Female
  Weight: 51.25 kg

DRUGS (8)
  1. ENBREL [Suspect]
     Indication: PRODUCT USED FOR UNKNOWN INDICATION
     Dosage: 25 MG, 2 TIMES/WK
     Route: 058
  2. LIVALO [Concomitant]
     Dosage: 2 MG, UNK
  3. METHOTREXATE [Concomitant]
     Dosage: 2.5 MG, UNK
  4. PREDNISONE [Concomitant]
     Dosage: 1 MG, UNK
  5. SYNTHROID [Concomitant]
     Dosage: 88 MUG, UNK
  6. VITAMIN D3 [Concomitant]
     Dosage: 2000 UNIT, UNK
  7. FOLIC ACID [Concomitant]
     Dosage: UNK
  8. IRON [Concomitant]
     Dosage: UNK

REACTIONS (3)
  - Influenza [Unknown]
  - Injection site pruritus [Unknown]
  - Injection site swelling [Unknown]
